FAERS Safety Report 17829752 (Version 1)
Quarter: 2020Q2

REPORT INFORMATION
  Report Type: Spontaneous
  Country: US (occurrence: US)
  Receive Date: 20200527
  Receipt Date: 20200527
  Transmission Date: 20200714
  Serious: Yes (Other)
  Sender: FDA-Public Use
  Company Number: None

PATIENT
  Age: 49 Year
  Weight: 83.8 kg

DRUGS (15)
  1. ACETAMINOPHEN 500 MG [Concomitant]
     Active Substance: ACETAMINOPHEN
     Dates: start: 20200523
  2. DOCUSATE 100 MG [Concomitant]
     Dates: start: 20200524
  3. REMDESIVIR INJECTION [Suspect]
     Active Substance: REMDESIVIR
     Indication: COVID-19
     Route: 041
  4. DEXTROMETHORPHAN-GUAIFENESIN CR 30-600 [Concomitant]
     Dates: start: 20200524
  5. ENOXAPARIN 40 MG [Concomitant]
     Active Substance: ENOXAPARIN
     Dates: start: 20200524
  6. FAMOTIDINE 20 MG [Concomitant]
     Active Substance: FAMOTIDINE
     Dates: start: 20200524
  7. ONDANSETRON 4MG/2ML [Concomitant]
     Dates: start: 20200524
  8. ALBUTEROL 90 MCG HFA [Concomitant]
     Dates: start: 20200524
  9. ASCORBIC ACID 500 MG [Concomitant]
     Dates: start: 20200524
  10. BENZONATATE 100 MG [Concomitant]
     Active Substance: BENZONATATE
     Dates: start: 20200524
  11. GUAIFENESIN 100/5 [Concomitant]
     Dates: start: 20200524
  12. DEXAMETHASONE 20 MG [Concomitant]
     Dates: start: 20200524
  13. ZINC SULFATE 220MG [Concomitant]
     Dates: start: 20200524
  14. DOCUSATE-SENNA 50/8.6 MG [Concomitant]
     Dates: start: 20200524
  15. LOPERAMIDE 2MG/15ML [Concomitant]
     Dates: start: 20200524

REACTIONS (1)
  - Transaminases increased [None]

NARRATIVE: CASE EVENT DATE: 20200526
